FAERS Safety Report 14210588 (Version 3)
Quarter: 2018Q1

REPORT INFORMATION
  Report Type: Report from Study
  Country: US (occurrence: US)
  Receive Date: 20171121
  Receipt Date: 20180330
  Transmission Date: 20180508
  Serious: No
  Sender: FDA-Public Use
  Company Number: US-MITSUBISHI TANABE PHARMA CORPORATION-MPE2017-0024246

PATIENT
  Age: 69 Year
  Sex: Male

DRUGS (3)
  1. RILUZOLE. [Concomitant]
     Active Substance: RILUZOLE
     Route: 065
  2. RADICAVA [Suspect]
     Active Substance: EDARAVONE
     Indication: AMYOTROPHIC LATERAL SCLEROSIS
     Route: 042
     Dates: start: 20171106, end: 20171119
  3. NAPROXEN. [Concomitant]
     Active Substance: NAPROXEN
     Route: 065

REACTIONS (4)
  - Condition aggravated [Unknown]
  - Drug ineffective [Unknown]
  - Incorrect dose administered [Unknown]
  - Catheter site pain [Unknown]

NARRATIVE: CASE EVENT DATE: 20171108
